FAERS Safety Report 4288571-X (Version None)
Quarter: 2004Q1

REPORT INFORMATION
  Report Type: 
  Country: None (occurrence: None)
  Receive Date: 20040205
  Receipt Date: 20040114
  Transmission Date: 20041129
  Serious: Yes (Hospitalization)
  Sender: FDA-Public Use
  Company Number: 701513

PATIENT
  Age: 36 Year
  Sex: Male

DRUGS (1)
  1. AMEVIVE [Suspect]
     Indication: PSORIASIS
     Dosage: 15 MG QW IM
     Route: 030
     Dates: start: 20031008, end: 20040101

REACTIONS (3)
  - CD4 LYMPHOCYTES DECREASED [None]
  - PSORIASIS [None]
  - TENDONITIS [None]
